FAERS Safety Report 9712129 (Version 2)
Quarter: 2013Q4

REPORT INFORMATION
  Report Type: Spontaneous
  Country: US (occurrence: None)
  Receive Date: 20131122
  Receipt Date: 20131127
  Transmission Date: 20140711
  Serious: Yes (Death, Hospitalization)
  Sender: FDA-Public Use
  Company Number: ACET20130035

PATIENT
  Age: 42 Year
  Sex: Female

DRUGS (1)
  1. Q-PAP [Suspect]
     Indication: PRODUCT USED FOR UNKNOWN INDICATION

REACTIONS (7)
  - Acute hepatic failure [None]
  - Toxicity to various agents [None]
  - Brain oedema [None]
  - Hepatic encephalopathy [None]
  - Intracranial pressure increased [None]
  - Liver transplant [None]
  - Circulatory collapse [None]
